FAERS Safety Report 10538598 (Version 2)
Quarter: 2014Q4

REPORT INFORMATION
  Report Type: Report from Study
  Country: CA (occurrence: CA)
  Receive Date: 20141023
  Receipt Date: 20141023
  Transmission Date: 20150529
  Serious: Yes (Hospitalization, Other)
  Sender: FDA-Public Use
  Company Number: CA-BRISTOL-MYERS SQUIBB COMPANY-17217340

PATIENT
  Age: 79 Year
  Sex: Female
  Weight: 55 kg

DRUGS (7)
  1. ORENCIA [Suspect]
     Active Substance: ABATACEPT
     Indication: RHEUMATOID ARTHRITIS
     Dosage: NO OF INFUSION:9?EXP DT:SEP2015?RECENT INF:07JUN2013, 12SEP13?BAT:NO:4C89733;EXP:DT:AUG-2016
     Route: 042
     Dates: start: 20120522
  2. CALCIUM [Concomitant]
     Active Substance: CALCIUM
  3. IMURAN [Concomitant]
     Active Substance: AZATHIOPRINE
  4. PREDNISONE. [Concomitant]
     Active Substance: PREDNISONE
  5. COZAAR [Concomitant]
     Active Substance: LOSARTAN POTASSIUM
  6. POTASSIUM [Concomitant]
     Active Substance: POTASSIUM
  7. MONOCOR [Concomitant]
     Active Substance: BISOPROLOL FUMARATE

REACTIONS (10)
  - Limb injury [Not Recovered/Not Resolved]
  - Squamous cell carcinoma of skin [Not Recovered/Not Resolved]
  - Blood cholesterol increased [Unknown]
  - Skin lesion [Not Recovered/Not Resolved]
  - Vertigo [Recovered/Resolved]
  - Dyspepsia [Unknown]
  - Myocardial infarction [Unknown]
  - Fatigue [Not Recovered/Not Resolved]
  - Basal cell carcinoma [Unknown]
  - Wound [Not Recovered/Not Resolved]

NARRATIVE: CASE EVENT DATE: 201212
